FAERS Safety Report 18774078 (Version 17)
Quarter: 2024Q3

REPORT INFORMATION
  Report Type: Spontaneous
  Country: IN (occurrence: IN)
  Receive Date: 20210122
  Receipt Date: 20240927
  Transmission Date: 20241016
  Serious: Yes (Other)
  Sender: PFIZER
  Company Number: IN-PFIZER INC-2020259854

PATIENT
  Age: 26 Year
  Sex: Female

DRUGS (8)
  1. SUTENT [Suspect]
     Active Substance: SUNITINIB MALATE
     Indication: Gastrointestinal stromal tumour
     Dosage: 500 MG
     Route: 048
     Dates: start: 20200630
  2. SUTENT [Suspect]
     Active Substance: SUNITINIB MALATE
     Dosage: 1X/DAY, 14 DAYS/7 DAYS OFF -2 CYCLE
     Route: 048
     Dates: start: 20200702
  3. SUTENT [Suspect]
     Active Substance: SUNITINIB MALATE
     Dosage: 1X/DAY 0-0-1 X 14 DAYS/7 DAYS OFF -1 CYCLE
     Route: 048
     Dates: start: 20210719
  4. SUTENT [Suspect]
     Active Substance: SUNITINIB MALATE
     Dosage: OD 14DAYS/07 DAYS OFF
     Route: 048
  5. SUTENT [Suspect]
     Active Substance: SUNITINIB MALATE
     Dosage: 1X/DAY 0-0-1 X 14 DAYS/7 DAYS OFF X 2 CYCLES
     Route: 048
  6. SUTENT [Suspect]
     Active Substance: SUNITINIB MALATE
     Dosage: 25 MG 1 HS 7/14 DAYS
     Route: 048
  7. SUTENT [Suspect]
     Active Substance: SUNITINIB MALATE
     Dosage: 25 MG, 1X/DAY
     Route: 048
  8. NUTROLIN B [LACTOBACILLUS NOS;NICOTINAMIDE;PYRIDOXINE HYDROCHLORIDE;RI [Concomitant]
     Dosage: 1-0-0 X 1 MONTH

REACTIONS (11)
  - Ascites [Recovering/Resolving]
  - Pericardial effusion [Unknown]
  - Haemoglobin decreased [Unknown]
  - Skin toxicity [Unknown]
  - Abdominal distension [Unknown]
  - Neoplasm progression [Not Recovered/Not Resolved]
  - Mucosal inflammation [Unknown]
  - Face oedema [Unknown]
  - Fatigue [Unknown]
  - Pleural effusion [Unknown]
  - Off label use [Unknown]

NARRATIVE: CASE EVENT DATE: 20200910
